FAERS Safety Report 15525584 (Version 1)
Quarter: 2018Q4

REPORT INFORMATION
  Report Type: Spontaneous
  Country: ES (occurrence: ES)
  Receive Date: 20181019
  Receipt Date: 20181019
  Transmission Date: 20190205
  Serious: Yes (Other)
  Sender: FDA-Public Use
  Company Number: ES-BAUSCH-BL-2018-028880

PATIENT
  Sex: Female

DRUGS (9)
  1. ZALTRAP [Suspect]
     Active Substance: ZIV-AFLIBERCEPT
     Dosage: QCY
     Route: 065
  2. FOLINIC ACID [Suspect]
     Active Substance: LEUCOVORIN
     Indication: PRODUCT USED FOR UNKNOWN INDICATION
     Dosage: QCY
     Route: 065
     Dates: start: 201707, end: 201707
  3. ZALTRAP [Suspect]
     Active Substance: ZIV-AFLIBERCEPT
     Indication: PRODUCT USED FOR UNKNOWN INDICATION
     Dosage: QCY
     Route: 065
     Dates: start: 201707, end: 201707
  4. ZALTRAP [Suspect]
     Active Substance: ZIV-AFLIBERCEPT
     Dosage: QCY
     Route: 065
  5. FOLINIC ACID [Suspect]
     Active Substance: LEUCOVORIN
     Dosage: QCY
     Route: 065
  6. FLUOROURACIL. [Suspect]
     Active Substance: FLUOROURACIL
     Indication: PRODUCT USED FOR UNKNOWN INDICATION
     Dosage: QCY
     Route: 065
     Dates: start: 201707, end: 201707
  7. IRINOTECAN [Suspect]
     Active Substance: IRINOTECAN
     Dosage: QCY
     Route: 065
  8. FLUOROURACIL. [Suspect]
     Active Substance: FLUOROURACIL
     Route: 065
  9. IRINOTECAN [Suspect]
     Active Substance: IRINOTECAN
     Indication: PRODUCT USED FOR UNKNOWN INDICATION
     Dosage: QCY
     Route: 065
     Dates: start: 201707, end: 201707

REACTIONS (5)
  - Neutropenia [Unknown]
  - Haemorrhoids [Unknown]
  - Anaemia [Unknown]
  - Haemorrhage [Unknown]
  - Hypertension [Unknown]
